FAERS Safety Report 19694320 (Version 1)
Quarter: 2021Q3

REPORT INFORMATION
  Report Type: Spontaneous
  Country: NL (occurrence: NL)
  Receive Date: 20210812
  Receipt Date: 20210812
  Transmission Date: 20211014
  Serious: Yes (Disabling, Other)
  Sender: FDA-Public Use
  Company Number: NL-MYLANLABS-2021M1049730

PATIENT
  Sex: Female
  Weight: 67 kg

DRUGS (3)
  1. ETHINYLESTRADIOL/LEVONORGESTREL [Suspect]
     Active Substance: ETHINYL ESTRADIOL\LEVONORGESTREL
     Indication: CONTRACEPTION
     Dosage: 1 DOSAGE FORM, QD, ONCE DAILY 1 PIECE, AFTER 3 WEEKS STOP WEEK
     Dates: start: 2014, end: 20210104
  2. CITALOPRAM [Concomitant]
     Active Substance: CITALOPRAM HYDROBROMIDE
     Dosage: UNK, TABLET
  3. RISPERIDON [Concomitant]
     Active Substance: RISPERIDONE
     Dosage: UNK, TABLET

REACTIONS (2)
  - Hypothyroidism [Not Recovered/Not Resolved]
  - Cortisol increased [Not Recovered/Not Resolved]
